FAERS Safety Report 16318805 (Version 1)
Quarter: 2019Q2

REPORT INFORMATION
  Report Type: Spontaneous
  Country: US (occurrence: US)
  Receive Date: 20190516
  Receipt Date: 20190516
  Transmission Date: 20190711
  Serious: Yes (Hospitalization, Other)
  Sender: FDA-Public Use
  Company Number: US-AXELLIA-002446

PATIENT
  Age: 59 Year
  Sex: Male
  Weight: 78.6 kg

DRUGS (4)
  1. TOBRAMYCIN. [Suspect]
     Active Substance: TOBRAMYCIN
     Indication: JOINT INJECTION
     Dosage: CALCIUM SULFATE STIMULAN BEADS WITH 2.4 G OF TOBRAMYCIN
  2. CEFTRIAXONE. [Concomitant]
     Active Substance: CEFTRIAXONE
     Route: 051
  3. CEFEPIME [Concomitant]
     Active Substance: CEFEPIME HYDROCHLORIDE
  4. VANCOMYCIN [Suspect]
     Active Substance: VANCOMYCIN
     Indication: JOINT INJECTION
     Dosage: INITIALLY RECEIVED 1.25 G EVERY 12 HOURS

REACTIONS (1)
  - Renal tubular necrosis [Recovered/Resolved]
